FAERS Safety Report 14266048 (Version 3)
Quarter: 2018Q1

REPORT INFORMATION
  Report Type: Other
  Country: US (occurrence: US)
  Receive Date: 20171209
  Receipt Date: 20180211
  Transmission Date: 20180508
  Serious: Yes (Death, Hospitalization)
  Sender: FDA-Public Use
  Company Number: US-INTERCEPT-PMOCA2017001535

PATIENT

DRUGS (3)
  1. OCALIVA [Suspect]
     Active Substance: OBETICHOLIC ACID
     Indication: PRIMARY BILIARY CHOLANGITIS
     Dosage: 5 MG, QD
     Route: 048
     Dates: start: 20161110, end: 201703
  2. OCALIVA [Suspect]
     Active Substance: OBETICHOLIC ACID
     Dosage: 10 MG, QD
     Route: 048
     Dates: start: 201703
  3. WARFARIN [Concomitant]
     Active Substance: WARFARIN

REACTIONS (6)
  - Pruritus [Recovered/Resolved]
  - Acute kidney injury [Unknown]
  - Hepatic failure [Unknown]
  - Peritonitis bacterial [Unknown]
  - Multiple organ dysfunction syndrome [Fatal]
  - Lung adenocarcinoma [Unknown]

NARRATIVE: CASE EVENT DATE: 201710
